FAERS Safety Report 25505063 (Version 1)
Quarter: 2025Q3

REPORT INFORMATION
  Report Type: Other
  Country: EU (occurrence: EU)
  Receive Date: 20250702
  Receipt Date: 20250702
  Transmission Date: 20251020
  Serious: Yes (Life-Threatening, Hospitalization)
  Sender: EMD SERONO INC
  Company Number: EU-Merck Healthcare KGaA-2025032143

PATIENT
  Age: 33 Year
  Sex: Female

DRUGS (1)
  1. LEVOTHYROXINE [Suspect]
     Active Substance: LEVOTHYROXINE
     Indication: Suicide attempt

REACTIONS (8)
  - Coma [Recovered/Resolved]
  - Toxicity to various agents [Unknown]
  - Suicide attempt [Unknown]
  - Pneumonia aspiration [Unknown]
  - Tri-iodothyronine free increased [Recovered/Resolved]
  - Thyroxine free increased [Recovered/Resolved]
  - Blood thyroid stimulating hormone decreased [Recovering/Resolving]
  - Intentional overdose [Unknown]
